FAERS Safety Report 22068766 (Version 1)
Quarter: 2023Q1

REPORT INFORMATION
  Report Type: Spontaneous
  Country: DE (occurrence: DE)
  Receive Date: 20230307
  Receipt Date: 20230307
  Transmission Date: 20230418
  Serious: Yes (Disabling, Other)
  Sender: FDA-Public Use
  Company Number: None

PATIENT
  Age: 49 Year
  Sex: Male
  Weight: 70 kg

DRUGS (39)
  1. CYCLOPHOSPHAMIDE [Suspect]
     Active Substance: CYCLOPHOSPHAMIDE
     Indication: Ewing^s sarcoma
     Dosage: 3X800MG (CHEMO 10)
     Route: 065
     Dates: start: 19900119, end: 19900122
  2. CYCLOPHOSPHAMIDE [Suspect]
     Active Substance: CYCLOPHOSPHAMIDE
     Dosage: 3X800MG (CHEMO 11)
     Route: 065
     Dates: start: 19900214, end: 19900217
  3. IFOSFAMIDE [Suspect]
     Active Substance: IFOSFAMIDE
     Indication: Ewing^s sarcoma
     Dosage: 4X3000MG (CHEMO 12)
     Route: 065
     Dates: start: 19900309, end: 19900313
  4. IFOSFAMIDE [Suspect]
     Active Substance: IFOSFAMIDE
     Dosage: CHEMO 9
     Route: 065
     Dates: start: 19891226, end: 19891230
  5. IFOSFAMIDE [Suspect]
     Active Substance: IFOSFAMIDE
     Dosage: 3X3000 MG (CHEMO 1)
     Route: 065
     Dates: start: 19890606, end: 19890612
  6. IFOSFAMIDE [Suspect]
     Active Substance: IFOSFAMIDE
     Dosage: 3X3000MG (CHEMO 5)
     Route: 065
     Dates: start: 19890915, end: 19890919
  7. IFOSFAMIDE [Suspect]
     Active Substance: IFOSFAMIDE
     Dosage: CHEMO 3
     Route: 065
     Dates: start: 19890720, end: 19890725
  8. IFOSFAMIDE [Suspect]
     Active Substance: IFOSFAMIDE
     Dosage: 4X3000 MG (CHEMO 4)
     Route: 065
     Dates: start: 19890826, end: 19890830
  9. IFOSFAMIDE [Suspect]
     Active Substance: IFOSFAMIDE
     Dosage: 3X3000MG , 1X2000MG (CHEMO 6)
     Route: 065
     Dates: start: 19891009, end: 19891013
  10. IFOSFAMIDE [Suspect]
     Active Substance: IFOSFAMIDE
     Dosage: 3X3000MG (CHEMO 2)
     Route: 065
     Dates: start: 19890628, end: 19890703
  11. IFOSFAMIDE [Suspect]
     Active Substance: IFOSFAMIDE
     Dosage: 2X2000MG, 2X3000MG (CHEMO 8)
     Route: 065
     Dates: start: 19891129, end: 19891203
  12. IFOSFAMIDE [Suspect]
     Active Substance: IFOSFAMIDE
     Dosage: 3X3000MG (CHEMO 7)
     Route: 065
     Dates: start: 19891103, end: 19891107
  13. IFOSFAMIDE [Suspect]
     Active Substance: IFOSFAMIDE
     Dosage: UNK
     Route: 065
  14. DACTINOMYCIN [Suspect]
     Active Substance: DACTINOMYCIN
     Indication: Ewing^s sarcoma
     Dosage: 3X1MG (CHEMO 11)
     Route: 065
     Dates: start: 19900214, end: 19900217
  15. DACTINOMYCIN [Suspect]
     Active Substance: DACTINOMYCIN
     Dosage: 3X1MG (CHEMO 6)
     Route: 065
     Dates: start: 19891009, end: 19891013
  16. DACTINOMYCIN [Suspect]
     Active Substance: DACTINOMYCIN
     Dosage: CHEMO 3
     Route: 065
     Dates: start: 19890720, end: 19890725
  17. DACTINOMYCIN [Suspect]
     Active Substance: DACTINOMYCIN
     Dosage: 3X1MG (CHEMO 2)
     Route: 065
     Dates: start: 19890628, end: 19890703
  18. DACTINOMYCIN [Suspect]
     Active Substance: DACTINOMYCIN
     Dosage: 3X1MG (CHEMO 5)
     Route: 065
     Dates: start: 19890915, end: 19890919
  19. DACTINOMYCIN [Suspect]
     Active Substance: DACTINOMYCIN
     Dosage: 2X1 MG (CHEMO1)
     Route: 065
     Dates: start: 19890606, end: 19890612
  20. VINCRISTINE [Suspect]
     Active Substance: VINCRISTINE
     Indication: Ewing^s sarcoma
     Dosage: 1X1,5MG (CHEMO 7)
     Route: 065
     Dates: start: 19891103, end: 19891107
  21. VINCRISTINE [Suspect]
     Active Substance: VINCRISTINE
     Dosage: 1X2MG (CHEMO 4)
     Route: 065
     Dates: start: 19890826, end: 19890830
  22. VINCRISTINE [Suspect]
     Active Substance: VINCRISTINE
     Dosage: 1X2MG (CHEMO 1)
     Route: 065
     Dates: start: 19890606, end: 19890612
  23. VINCRISTINE [Suspect]
     Active Substance: VINCRISTINE
     Dosage: 1X2MG (CHEMO 8)
     Route: 065
     Dates: start: 19891129, end: 19891203
  24. VINCRISTINE [Suspect]
     Active Substance: VINCRISTINE
     Dosage: 1X1,5MG (CHEMO 5)
     Route: 065
     Dates: start: 19890915, end: 19890919
  25. VINCRISTINE [Suspect]
     Active Substance: VINCRISTINE
     Dosage: CHEMO 3
     Route: 065
     Dates: start: 19890720, end: 19890725
  26. VINCRISTINE [Suspect]
     Active Substance: VINCRISTINE
     Dosage: 1X2MG (CHEMO 10)
     Route: 065
     Dates: start: 19900119, end: 19900122
  27. VINCRISTINE [Suspect]
     Active Substance: VINCRISTINE
     Dosage: 1X1MG (CHEMO 11)
     Route: 065
     Dates: start: 19900214, end: 19900217
  28. VINCRISTINE [Suspect]
     Active Substance: VINCRISTINE
     Dosage: CHEMO 9
     Route: 065
     Dates: start: 19891226, end: 19891230
  29. VINCRISTINE [Suspect]
     Active Substance: VINCRISTINE
     Dosage: 1X2 MG (CHEMO 2)
     Route: 065
     Dates: start: 19890628, end: 19890703
  30. ETOPOSIDE [Suspect]
     Active Substance: ETOPOSIDE
     Indication: Ewing^s sarcoma
     Dosage: 3X400MG (CHEMO 6)
     Route: 065
     Dates: start: 19891009, end: 19891013
  31. ETOPOSIDE [Suspect]
     Active Substance: ETOPOSIDE
     Dosage: 3X400MG (CHEMO 10)
     Route: 065
     Dates: start: 19900119, end: 19900122
  32. ETOPOSIDE [Suspect]
     Active Substance: ETOPOSIDE
     Dosage: 3X400MG (CHEMO 4)
     Route: 065
     Dates: start: 19890826, end: 19890830
  33. ETOPOSIDE [Suspect]
     Active Substance: ETOPOSIDE
     Dosage: 1X150MG WITH 2X400MG (CHEMO 12)
     Route: 065
     Dates: start: 19900309, end: 19900313
  34. ETOPOSIDE [Suspect]
     Active Substance: ETOPOSIDE
     Dosage: 3X400MG (CHEMO 8)
     Route: 065
     Dates: start: 19891129, end: 19891203
  35. ADRIAMYCIN [Suspect]
     Active Substance: DOXORUBICIN HYDROCHLORIDE
     Indication: Ewing^s sarcoma
     Dosage: 2X60MG (CHEMO 2)
     Route: 065
     Dates: start: 19890628, end: 19890703
  36. ADRIAMYCIN [Suspect]
     Active Substance: DOXORUBICIN HYDROCHLORIDE
     Dosage: 2X 60MG (CHEMO 1)
     Route: 065
     Dates: start: 19890606, end: 19890612
  37. ADRIAMYCIN [Suspect]
     Active Substance: DOXORUBICIN HYDROCHLORIDE
     Dosage: 2X60MG (CHEMO 5)
     Route: 065
     Dates: start: 19890915, end: 19890919
  38. ADRIAMYCIN [Suspect]
     Active Substance: DOXORUBICIN HYDROCHLORIDE
     Dosage: 2X60MG (CHEMO 4)
     Route: 065
     Dates: start: 19890826, end: 19890830
  39. ADRIAMYCIN [Suspect]
     Active Substance: DOXORUBICIN HYDROCHLORIDE
     Dosage: CHEMO 3
     Route: 065
     Dates: start: 19890720, end: 19890725

REACTIONS (13)
  - Altered state of consciousness [Unknown]
  - Adverse reaction [Recovered/Resolved with Sequelae]
  - Hallucination [Unknown]
  - Disorientation [Recovered/Resolved with Sequelae]
  - Headache [Recovered/Resolved with Sequelae]
  - Seizure [Unknown]
  - Nausea [Recovered/Resolved with Sequelae]
  - Muscle spasms [Unknown]
  - Confusional state [Unknown]
  - Headache [Not Recovered/Not Resolved]
  - Fatigue [Not Recovered/Not Resolved]
  - Vomiting [Unknown]
  - Asthenia [Not Recovered/Not Resolved]
